FAERS Safety Report 17967324 (Version 1)
Quarter: 2020Q3

REPORT INFORMATION
  Report Type: Spontaneous
  Country: US (occurrence: US)
  Receive Date: 20200701
  Receipt Date: 20200701
  Transmission Date: 20201103
  Serious: Yes (Hospitalization)
  Sender: FDA-Public Use
  Company Number: None

PATIENT
  Age: 20 Month
  Sex: Female
  Weight: 9.3 kg

DRUGS (2)
  1. CYCLOPHOSPHAMIDE. [Suspect]
     Active Substance: CYCLOPHOSPHAMIDE
     Dates: end: 20200414
  2. TOPOTECAN [Suspect]
     Active Substance: TOPOTECAN HYDROCHLORIDE
     Dates: end: 20200414

REACTIONS (6)
  - Pyrexia [None]
  - Anaemia [None]
  - Fatigue [None]
  - Aspartate aminotransferase increased [None]
  - Neutropenia [None]
  - Abdominal wall haemorrhage [None]

NARRATIVE: CASE EVENT DATE: 20200418
